FAERS Safety Report 4429387-0 (Version None)
Quarter: 2004Q3

REPORT INFORMATION
  Report Type: 
  Country: None (occurrence: None)
  Receive Date: 20040817
  Receipt Date: 20040817
  Transmission Date: 20050211
  Serious: No
  Sender: FDA-Public Use
  Company Number: None

PATIENT
  Age: 86 Year
  Sex: Female

DRUGS (1)
  1. SENSORCAINE [Suspect]
     Indication: ANALGESIC EFFECT
     Dosage: 2.5 CC OF 0.5% W/ 7CC PENS EPIDURALLY
     Route: 008
     Dates: start: 20040622

REACTIONS (2)
  - BLOOD PRESSURE DECREASED [None]
  - MOTOR DYSFUNCTION [None]
